FAERS Safety Report 6550407-1 (Version None)
Quarter: 2010Q1

REPORT INFORMATION
  Report Type: 
  Country: None (occurrence: None)
  Receive Date: 20100125
  Receipt Date: 20100119
  Transmission Date: 20100710
  Serious: Yes (Hospitalization)
  Sender: FDA-Public Use
  Company Number: FR-ROXANE LABORATORIES, INC.-2010-RO-00082RO

PATIENT
  Age: 60 Year
  Sex: Female

DRUGS (1)
  1. RISPERIDONE [Suspect]

REACTIONS (1)
  - PHOTOSENSITIVITY REACTION [None]
